FAERS Safety Report 5884708-7 (Version None)
Quarter: 2008Q3

REPORT INFORMATION
  Report Type: 
  Country: None (occurrence: None)
  Receive Date: 20080916
  Receipt Date: 20080908
  Transmission Date: 20090109
  Serious: Yes (Other)
  Sender: FDA-Public Use
  Company Number: US-AVENTIS-200815934US

PATIENT
  Age: 53 Year
  Sex: Female
  Weight: 77.11 kg

DRUGS (10)
  1. LANTUS [Suspect]
     Dosage: DOSE: SLIDING SCALE 28-40
     Route: 058
  2. HUMALOG [Concomitant]
     Dosage: DOSE: UNK
  3. POTASSIUM CHLORIDE [Concomitant]
     Dosage: DOSE: UNK
  4. BENICAR [Concomitant]
     Dosage: DOSE: UNK
  5. ASPIRIN [Concomitant]
     Dosage: DOSE: UNK
  6. PRILOSEC [Concomitant]
     Dosage: DOSE: UNK
  7. COREG [Concomitant]
     Dosage: DOSE: UNK
  8. LASIX [Concomitant]
     Dosage: DOSE: UNK
  9. LEXAPRO [Concomitant]
     Dosage: DOSE: UNK
  10. LIPITOR [Concomitant]
     Dosage: DOSE: UNK

REACTIONS (1)
  - WEIGHT INCREASED [None]
